FAERS Safety Report 8802455 (Version 1)
Quarter: 2012Q4

REPORT INFORMATION
  Report Type: 
  Country: US (occurrence: US)
  Receive Date: 20120921
  Receipt Date: 20120921
  Transmission Date: 20130627
  Serious: Yes (Hospitalization)
  Sender: FDA-Public Use
  Company Number: US-ASTRAZENECA-2012SE72105

PATIENT
  Age: 58 Year
  Sex: Female

DRUGS (3)
  1. SEROQUEL XR [Suspect]
     Indication: BIPOLAR I DISORDER
     Route: 048
     Dates: start: 2012
  2. THORAZINE [Concomitant]
     Route: 048
  3. DEPAKOTE [Concomitant]
     Dosage: daily
     Route: 048

REACTIONS (1)
  - Tremor [Unknown]
